FAERS Safety Report 15620055 (Version 3)
Quarter: 2022Q4

REPORT INFORMATION
  Report Type: Spontaneous
  Country: FR (occurrence: FR)
  Receive Date: 20181115
  Receipt Date: 20221118
  Transmission Date: 20230112
  Serious: Yes (Life-Threatening, Other)
  Sender: FDA-Public Use
  Company Number: None

PATIENT
  Age: 38 Year
  Sex: Male

DRUGS (14)
  1. METHOTREXATE [Suspect]
     Active Substance: METHOTREXATE
     Indication: Central nervous system lymphoma
     Dosage: FROM 4 COURSES OF R-DIAM AT 2ND RELAPSE (15 MG)
     Route: 037
  2. BUSULFAN [Suspect]
     Active Substance: BUSULFAN
     Indication: Autologous haematopoietic stem cell transplant
     Dosage: 0.8 MG/KG, QID (4/DAY) FROM DAY -6 TO -4
     Route: 042
  3. CYTARABINE [Suspect]
     Active Substance: CYTARABINE
     Indication: Central nervous system lymphoma
     Dosage: 4 COURSES OF R-DIAM (CYTARABIN 1500 MG/M2 X 2 /DAY ON D1-D2)
     Route: 065
  4. CYCLOPHOSPHAMIDE [Suspect]
     Active Substance: CYCLOPHOSPHAMIDE
     Indication: Autologous haematopoietic stem cell transplant
     Dosage: 60 MG/KG, ON DAY -3 AND -2??CONDITIONING THERAPY FOR SECOND ASCT (60 MG/KG)
     Route: 065
  5. IFOSFAMIDE [Suspect]
     Active Substance: IFOSFAMIDE
     Indication: Central nervous system lymphoma
     Dosage: 4 COURSES OF R-DIAM (IFOSFAMIDE 1500 MG/M2  FROM  D1-D5)
     Route: 065
  6. DEXAMETHASONE [Suspect]
     Active Substance: DEXAMETHASONE
     Indication: Central nervous system lymphoma
     Dosage: FROM 4 COURSES OF R-DIAM AT 2ND RELAPSE (40 MG D1 TO D4)
     Route: 065
  7. THIOTEPA [Suspect]
     Active Substance: THIOTEPA
     Indication: Autologous haematopoietic stem cell transplant
     Dosage: 250 MG/M2 FROM  DAY-9 TO -7
     Route: 065
  8. RITUXIMAB [Suspect]
     Active Substance: RITUXIMAB
     Indication: Central nervous system lymphoma
     Dosage: 4 COURSES OF R-DIAM (RITUXIMAB 375 MG/M2 IV AT D1)
     Route: 042
  9. CYCLOPHOSPHAMIDE [Suspect]
     Active Substance: CYCLOPHOSPHAMIDE
     Indication: Autologous haematopoietic stem cell transplant
     Dosage: CONDITIONING THERAPY FOR SECOND ASCT (60 MG/KG)
  10. CEFTAZIDIME [Suspect]
     Active Substance: CEFTAZIDIME
     Indication: Product used for unknown indication
  11. BUSULFAN [Suspect]
     Active Substance: BUSULFAN
     Indication: Autologous haematopoietic stem cell transplant
     Dosage: 0.8 MG/KG, QID (4/DAY) FROM DAY -6 TO -4 : 63 UG X10 DOSES IN TOTAL
  12. RACECADOTRIL [Suspect]
     Active Substance: RACECADOTRIL
     Indication: Product used for unknown indication
  13. LENOGRASTIM [Suspect]
     Active Substance: LENOGRASTIM
     Indication: Product used for unknown indication
     Dosage: 34 MUI/D, STARTING AT D12 AFTER THE 2ND CYCLE OF R-DIAM
  14. CYCLOPHOSPHAMIDE [Suspect]
     Active Substance: CYCLOPHOSPHAMIDE
     Indication: Product used for unknown indication
     Dosage: 2 CYCLES OF COPADEM INDUCTION (250 MG/M2 EVERY 12 HOURS)

REACTIONS (3)
  - Enterobacter sepsis [Recovering/Resolving]
  - Mucosal inflammation [Recovering/Resolving]
  - Pseudomonal sepsis [Recovering/Resolving]
